FAERS Safety Report 12864882 (Version 1)
Quarter: 2016Q4

REPORT INFORMATION
  Report Type: Spontaneous
  Country: US (occurrence: US)
  Receive Date: 20161019
  Receipt Date: 20161019
  Transmission Date: 20170207
  Serious: Yes (Hospitalization, Disabling, Other)
  Sender: FDA-Public Use
  Company Number: None

PATIENT
  Age: 42 Year
  Sex: Male
  Weight: 117 kg

DRUGS (1)
  1. EQUATE CHOCOLATE LAXATIVE [Suspect]
     Active Substance: SENNOSIDES
     Indication: ENEMA ADMINISTRATION
     Dosage: ?          QUANTITY:12 PIECES;?
     Route: 048
     Dates: end: 20160909

REACTIONS (7)
  - Vomiting [None]
  - Chills [None]
  - Syncope [None]
  - Pyrexia [None]
  - Hyperhidrosis [None]
  - Asthenia [None]
  - Blood pressure increased [None]

NARRATIVE: CASE EVENT DATE: 20160909
